FAERS Safety Report 9913706 (Version 1)
Quarter: 2014Q1

REPORT INFORMATION
  Report Type: Spontaneous
  Country: US (occurrence: None)
  Receive Date: 20140218
  Receipt Date: 20140218
  Transmission Date: 20141002
  Serious: Yes (Other)
  Sender: FDA-Public Use
  Company Number: None

PATIENT
  Age: 25 Year
  Sex: Male

DRUGS (1)
  1. HUMIRA 40MG ABBVIE [Suspect]
     Indication: PSORIASIS
     Route: 058
     Dates: start: 20121213

REACTIONS (4)
  - Pyrexia [None]
  - Tinnitus [None]
  - Infection [None]
  - Visual impairment [None]
